FAERS Safety Report 18043320 (Version 1)
Quarter: 2020Q3

REPORT INFORMATION
  Report Type: Other
  Country: CO (occurrence: CO)
  Receive Date: 20200720
  Receipt Date: 20200720
  Transmission Date: 20201103
  Serious: No
  Sender: FDA-Public Use
  Company Number: CO-ROCHE-2524538

PATIENT
  Sex: Female
  Weight: 90 kg

DRUGS (1)
  1. OCREVUS [Suspect]
     Active Substance: OCRELIZUMAB
     Indication: RELAPSING-REMITTING MULTIPLE SCLEROSIS
     Dosage: 02/JAN/2020
     Route: 042
     Dates: start: 20191213

REACTIONS (6)
  - Asthenia [Not Recovered/Not Resolved]
  - Arthralgia [Not Recovered/Not Resolved]
  - Apathy [Unknown]
  - Gait disturbance [Not Recovered/Not Resolved]
  - Discomfort [Unknown]
  - Influenza [Unknown]
